FAERS Safety Report 9537620 (Version 2)
Quarter: 2013Q4

REPORT INFORMATION
  Report Type: Spontaneous
  Country: FR (occurrence: FR)
  Receive Date: 20130919
  Receipt Date: 20131105
  Transmission Date: 20140711
  Serious: No
  Sender: FDA-Public Use
  Company Number: FR-B.I. PHARMACEUTICALS,INC./RIDGEFIELD-2013-FF-02315FF

PATIENT
  Age: 84 Year
  Sex: Female
  Weight: 62 kg

DRUGS (9)
  1. PRADAXA [Suspect]
     Route: 048
  2. PROTON PUMP INHIBITOR [Concomitant]
  3. SERMION [Concomitant]
  4. SECTRAL [Concomitant]
     Dosage: 200 MG
     Route: 048
  5. RAMIPRIL [Concomitant]
     Dosage: 5 MG
     Route: 048
  6. EFFERALGAN [Concomitant]
  7. ZOLTUM [Concomitant]
     Route: 048
  8. DEROXAT [Concomitant]
     Dosage: 20 MG
     Route: 048
  9. PIASCLEDINE [Concomitant]
     Route: 048

REACTIONS (2)
  - Diarrhoea [Not Recovered/Not Resolved]
  - Weight decreased [Unknown]
